FAERS Safety Report 14261782 (Version 3)
Quarter: 2018Q3

REPORT INFORMATION
  Report Type: Spontaneous
  Country: ES (occurrence: ES)
  Receive Date: 20171208
  Receipt Date: 20180710
  Transmission Date: 20181010
  Serious: Yes (Life-Threatening, Hospitalization, Other)
  Sender: FDA-Public Use
  Company Number: ES-ASTRAZENECA-2017SF24440

PATIENT
  Age: 34 Year
  Sex: Female

DRUGS (3)
  1. QUETIAPINE. [Suspect]
     Active Substance: QUETIAPINE
     Indication: AGITATION
     Route: 048
     Dates: start: 20170830, end: 20170904
  2. CLONAZEPAM. [Suspect]
     Active Substance: CLONAZEPAM
     Indication: AGITATION
     Route: 060
     Dates: start: 20170905, end: 20170905
  3. HALOPERIDOL. [Suspect]
     Active Substance: HALOPERIDOL
     Indication: AGITATION
     Route: 048
     Dates: start: 20170821, end: 20170905

REACTIONS (3)
  - Tonic clonic movements [Recovered/Resolved]
  - Depressed level of consciousness [Recovered/Resolved]
  - Respiratory arrest [Recovered/Resolved]

NARRATIVE: CASE EVENT DATE: 20170905
